FAERS Safety Report 24679062 (Version 2)
Quarter: 2025Q1

REPORT INFORMATION
  Report Type: Spontaneous
  Country: JP (occurrence: JP)
  Receive Date: 20241129
  Receipt Date: 20250217
  Transmission Date: 20250408
  Serious: Yes (Life-Threatening, Hospitalization, Other)
  Sender: ALEXION PHARMACEUTICALS
  Company Number: JP-ASTRAZENECA-240132154_013120_P_1

PATIENT
  Age: 72 Year
  Weight: 72 kg

DRUGS (19)
  1. DURVALUMAB [Suspect]
     Active Substance: DURVALUMAB
     Indication: Bile duct cancer
     Dosage: 1500 MILLIGRAM, Q3W
  2. DURVALUMAB [Suspect]
     Active Substance: DURVALUMAB
     Dosage: 1500 MILLIGRAM, Q4W
  3. CISPLATIN [Concomitant]
     Active Substance: CISPLATIN
     Indication: Bile duct cancer
     Route: 065
  4. GEMCITABINE [Suspect]
     Active Substance: GEMCITABINE
     Indication: Bile duct cancer
     Route: 065
  5. ROSUVASTATIN [Concomitant]
     Active Substance: ROSUVASTATIN
     Dosage: AFTER BRAKFAST
  6. URSO [Concomitant]
     Active Substance: URSODIOL
     Dosage: AFTER EVERY MEAL
  7. LANSOPRAZOLE [Concomitant]
     Active Substance: LANSOPRAZOLE
  8. VOGLIBOSE [Concomitant]
     Active Substance: VOGLIBOSE
  9. MAGNESIUM OXIDE [Concomitant]
     Active Substance: MAGNESIUM OXIDE
  10. CANDESARTAN [Concomitant]
     Active Substance: CANDESARTAN
  11. NIFEDIPINE [Concomitant]
     Active Substance: NIFEDIPINE
  12. LASIX [Concomitant]
     Active Substance: FUROSEMIDE
  13. CALONAL [Concomitant]
     Active Substance: ACETAMINOPHEN
  14. CANDESARTAN CILEXETIL [Concomitant]
     Active Substance: CANDESARTAN CILEXETIL
     Dosage: AFTER BRAKFAST
  15. FEBUXOSTAT [Concomitant]
     Active Substance: FEBUXOSTAT
     Dosage: AFTER BRAKFAST
  16. VOGLIBOSE [Concomitant]
     Active Substance: VOGLIBOSE
     Dosage: BEFORE EVERY MEAL
  17. GASTER [Concomitant]
     Active Substance: FAMOTIDINE
     Dosage: AFTER BRAKFAST AND EVENING MEAL
  18. REBAMIPIDE [Concomitant]
     Active Substance: REBAMIPIDE
     Dosage: AFTER EVERY MEAL
  19. MAGNESIUM OXIDE [Concomitant]
     Active Substance: MAGNESIUM OXIDE
     Dosage: AFTER EVERY MEAL

REACTIONS (4)
  - Interstitial lung disease [Recovering/Resolving]
  - Hypothyroidism [Unknown]
  - Hepatic function abnormal [Unknown]
  - Pneumonia bacterial [Unknown]
